FAERS Safety Report 14753178 (Version 2)
Quarter: 2019Q1

REPORT INFORMATION
  Report Type: Spontaneous
  Country: US (occurrence: US)
  Receive Date: 20180412
  Receipt Date: 20190327
  Transmission Date: 20190417
  Serious: No
  Sender: FDA-Public Use
  Company Number: US-MYLANLABS-2018M1018711

PATIENT
  Sex: Male
  Weight: 86 kg

DRUGS (5)
  1. CLONAZEPAM. [Concomitant]
     Active Substance: CLONAZEPAM
     Indication: PRODUCT USED FOR UNKNOWN INDICATION
  2. OXYCODONE [Concomitant]
     Active Substance: OXYCODONE
     Indication: PRODUCT USED FOR UNKNOWN INDICATION
     Route: 042
  3. VITAMIN K [Concomitant]
     Active Substance: PHYTONADIONE
     Indication: VITAMIN K DEFICIENCY
     Dosage: UNK
     Route: 048
  4. FENTANYL TRANSDERMAL SYSTEM [Suspect]
     Active Substance: FENTANYL
     Indication: PAIN
     Dosage: 1 UNK, UNK
     Route: 062
  5. FENTANYL TRANSDERMAL SYSTEM [Suspect]
     Active Substance: FENTANYL
     Indication: INCOMPLETE SPINAL FUSION

REACTIONS (5)
  - Drug screen negative [Unknown]
  - Product adhesion issue [Unknown]
  - Drug effect decreased [Not Recovered/Not Resolved]
  - Off label use [Not Recovered/Not Resolved]
  - Vitamin K deficiency [Not Recovered/Not Resolved]
